FAERS Safety Report 10018201 (Version 2)
Quarter: 2014Q1

REPORT INFORMATION
  Report Type: Spontaneous
  Country: US (occurrence: US)
  Receive Date: 20140318
  Receipt Date: 20140318
  Transmission Date: 20141002
  Serious: No
  Sender: FDA-Public Use
  Company Number: US-BRISTOL-MYERS SQUIBB COMPANY-19216134

PATIENT
  Age: 33 Year
  Sex: Male

DRUGS (1)
  1. ERBITUX [Suspect]

REACTIONS (2)
  - Accidental exposure to product [Unknown]
  - Burning sensation [Recovered/Resolved]
